FAERS Safety Report 6042690-6 (Version None)
Quarter: 2009Q1

REPORT INFORMATION
  Report Type: 
  Country: None (occurrence: None)
  Receive Date: 20090119
  Receipt Date: 20090112
  Transmission Date: 20090719
  Serious: Yes (Other)
  Sender: FDA-Public Use
  Company Number: PHHY2008DE33002

PATIENT
  Sex: Female

DRUGS (6)
  1. LIORESAL [Suspect]
     Indication: MUSCLE SPASTICITY
     Dosage: 60 MG DAILY
     Route: 048
     Dates: start: 19920101
  2. LIORESAL [Suspect]
     Dosage: 60MG PER DAY
     Route: 048
     Dates: start: 19980101
  3. BACLOFEN [Suspect]
     Indication: MUSCLE SPASTICITY
     Route: 048
  4. IMUREK [Concomitant]
  5. DIBENZYRAN [Concomitant]
  6. AURORIX [Concomitant]

REACTIONS (1)
  - BLADDER SPASM [None]
